FAERS Safety Report 9586207 (Version 1)
Quarter: 2013Q4

REPORT INFORMATION
  Report Type: Spontaneous
  Country: US (occurrence: None)
  Receive Date: 20131001
  Receipt Date: 20131001
  Transmission Date: 20140711
  Serious: Yes (Other)
  Sender: FDA-Public Use
  Company Number: 2013AP008254

PATIENT
  Age: 29 Year
  Sex: Male

DRUGS (1)
  1. OLANZAPINE [Suspect]
     Route: 048

REACTIONS (2)
  - Depressed level of consciousness [None]
  - Overdose [None]
